FAERS Safety Report 8244834-4 (Version None)
Quarter: 2012Q1

REPORT INFORMATION
  Report Type: 
  Country: None (occurrence: None)
  Receive Date: 20120329
  Receipt Date: 20110601
  Transmission Date: 20120608
  Serious: No
  Sender: FDA-Public Use
  Company Number: US-MYLANLABS-2011S1011569

PATIENT
  Age: 59 Year
  Sex: Male
  Weight: 117.94 kg

DRUGS (1)
  1. FENTANYL-100 [Suspect]
     Indication: BACK PAIN
     Dosage: CHANGED Q 48 HOURS.
     Route: 062
     Dates: start: 20110525

REACTIONS (4)
  - BACK PAIN [None]
  - DRUG INEFFECTIVE [None]
  - FLUSHING [None]
  - WITHDRAWAL SYNDROME [None]
